FAERS Safety Report 19416568 (Version 1)
Quarter: 2021Q2

REPORT INFORMATION
  Report Type: Other
  Country: CN (occurrence: CN)
  Receive Date: 20210614
  Receipt Date: 20210614
  Transmission Date: 20210717
  Serious: Yes (Other)
  Sender: FDA-Public Use
  Company Number: CN-ROCHE-2847656

PATIENT

DRUGS (5)
  1. BEVACIZUMAB. [Suspect]
     Active Substance: BEVACIZUMAB
     Indication: LUNG NEOPLASM MALIGNANT
     Route: 065
  2. PEMBROLIZUMAB. [Suspect]
     Active Substance: PEMBROLIZUMAB
     Indication: LUNG NEOPLASM MALIGNANT
     Route: 065
  3. CAMRELIZUMAB [Suspect]
     Active Substance: CAMRELIZUMAB
     Indication: LUNG NEOPLASM MALIGNANT
     Route: 065
  4. NIVOLUMAB [Suspect]
     Active Substance: NIVOLUMAB
     Indication: LUNG NEOPLASM MALIGNANT
     Route: 065
  5. TORIPALIMAB. [Suspect]
     Active Substance: TORIPALIMAB
     Indication: LUNG NEOPLASM MALIGNANT
     Route: 065

REACTIONS (13)
  - Anaemia [Unknown]
  - Pneumonitis [Unknown]
  - Gingival bleeding [Unknown]
  - Alanine aminotransferase increased [Unknown]
  - Leukopenia [Unknown]
  - Thrombocytopenia [Unknown]
  - Pyrexia [Unknown]
  - Aspartate aminotransferase increased [Unknown]
  - Decreased appetite [Unknown]
  - Rash [Unknown]
  - Fatigue [Unknown]
  - Nausea [Unknown]
  - Hypothyroidism [Unknown]
